FAERS Safety Report 5827995-3 (Version None)
Quarter: 2008Q3

REPORT INFORMATION
  Report Type: 
  Country: None (occurrence: None)
  Receive Date: 20080728
  Receipt Date: 20080717
  Transmission Date: 20090109
  Serious: Yes (Hospitalization)
  Sender: FDA-Public Use
  Company Number: AZAUS200800225

PATIENT
  Age: 86 Year
  Sex: Male
  Weight: 66.2 kg

DRUGS (1)
  1. VIDAZA [Suspect]
     Indication: MYELODYSPLASTIC SYNDROME
     Dosage: (50 MG/M2, DAILY X 5 DAYS), SUBCUTANEOUS
     Route: 058
     Dates: start: 20080714, end: 20080716

REACTIONS (4)
  - HAEMOGLOBIN DECREASED [None]
  - INTESTINAL PERFORATION [None]
  - MENTAL DISORDER [None]
  - MOOD ALTERED [None]
